FAERS Safety Report 26144789 (Version 1)
Quarter: 2025Q4

REPORT INFORMATION
  Report Type: Spontaneous
  Country: US (occurrence: None)
  Receive Date: 20251210
  Receipt Date: 20251210
  Transmission Date: 20260118
  Serious: Yes (Death)
  Sender: FDA-CTU
  Company Number: None

PATIENT
  Age: 83 Year
  Sex: Male

DRUGS (8)
  1. COLLAGENASE SANTYL [Suspect]
     Active Substance: COLLAGENASE CLOSTRIDIUM HISTOLYTICUM
     Indication: Wound
     Dosage: APPLY OINTMENT DAILY TOPICAL
     Route: 061
     Dates: start: 20251011
  2. ALLOPURINOL 1OOMG [Concomitant]
  3. COREG 3.125MG [Concomitant]
  4. ACETAMINOPHEN\HYDROCODONE BITARTRATE [Concomitant]
     Active Substance: ACETAMINOPHEN\HYDROCODONE BITARTRATE
  5. HYOSCAMINE 0.125MG [Concomitant]
  6. MORPHINE SULFATE [Concomitant]
     Active Substance: MORPHINE SULFATE
  7. PRAVASTATIN [Concomitant]
     Active Substance: PRAVASTATIN
  8. COLLAGENASE SANTYL [Suspect]
     Active Substance: COLLAGENASE CLOSTRIDIUM HISTOLYTICUM
     Indication: Wound
     Dosage: APPLY OINTMENT DAILY TOPICAL
     Route: 061
     Dates: start: 20251011

REACTIONS (1)
  - Death [None]

NARRATIVE: CASE EVENT DATE: 20251030
